FAERS Safety Report 7257960-3 (Version None)
Quarter: 2011Q1

REPORT INFORMATION
  Report Type: 
  Country: None (occurrence: None)
  Receive Date: 20110129
  Receipt Date: 20100609
  Transmission Date: 20110831
  Serious: Yes (Other)
  Sender: FDA-Public Use
  Company Number: US-ABBOTT-10P-163-0650684-00

PATIENT
  Sex: Female

DRUGS (9)
  1. HUMIRA [Suspect]
     Indication: PSORIATIC ARTHROPATHY
  2. TOPROL-XL [Concomitant]
     Indication: HYPERTENSION
  3. SPIRIVA [Concomitant]
     Indication: PRODUCT USED FOR UNKNOWN INDICATION
  4. METFORMIN [Concomitant]
     Indication: DIABETES MELLITUS
  5. HUMIRA [Suspect]
     Indication: PSORIASIS
     Dates: start: 20090915, end: 20100608
  6. COUMADIN [Concomitant]
     Indication: ATRIAL FIBRILLATION
  7. GLYBURIDE [Concomitant]
     Indication: DIABETES MELLITUS
  8. BIETTA [Concomitant]
     Indication: DIABETES MELLITUS
  9. LOVOXYL [Concomitant]
     Indication: HYPOTHYROIDISM

REACTIONS (2)
  - CARDIAC FAILURE CONGESTIVE [None]
  - PSORIASIS [None]
